FAERS Safety Report 5804425-9 (Version None)
Quarter: 2008Q3

REPORT INFORMATION
  Report Type: 
  Country: None (occurrence: None)
  Receive Date: 20080707
  Receipt Date: 20080707
  Transmission Date: 20090109
  Serious: Yes (Disabling)
  Sender: FDA-Public Use
  Company Number: None

PATIENT
  Age: 60 Year
  Sex: Female
  Weight: 48.0813 kg

DRUGS (1)
  1. BONIVA [Suspect]
     Indication: ARTHROPATHY
     Dosage: 1 PILL MONTHLY
     Dates: start: 20060401, end: 20080301

REACTIONS (1)
  - BONE DISORDER [None]
